FAERS Safety Report 12845057 (Version 1)
Quarter: 2016Q4

REPORT INFORMATION
  Report Type: Spontaneous
  Country: US (occurrence: US)
  Receive Date: 20161013
  Receipt Date: 20161013
  Transmission Date: 20170207
  Serious: No
  Sender: FDA-Public Use
  Company Number: GXBR2016US002654

PATIENT
  Sex: Female
  Weight: 61.22 kg

DRUGS (2)
  1. NYSTATIN. [Concomitant]
     Active Substance: NYSTATIN
     Indication: ORAL CANDIDIASIS
     Dosage: UNK DF, QID
     Route: 048
  2. NYSTATIN+TRIAMCINOLONE [Suspect]
     Active Substance: NYSTATIN\TRIAMCINOLONE ACETONIDE
     Indication: ORAL CANDIDIASIS
     Dosage: UNK DF, QID ON DENTURES
     Route: 061

REACTIONS (1)
  - Incorrect route of drug administration [Not Recovered/Not Resolved]
